FAERS Safety Report 8617338-4 (Version None)
Quarter: 2012Q3

REPORT INFORMATION
  Report Type: 
  Country: None (occurrence: None)
  Receive Date: 20120823
  Receipt Date: 20120229
  Transmission Date: 20120928
  Serious: Yes (Hospitalization, Other)
  Sender: FDA-Public Use
  Company Number: JP-009507513-1207JPN000057

PATIENT

DRUGS (10)
  1. TELAVIC [Suspect]
     Indication: HEPATITIS C
     Dosage: 2250 MG, ONCE
     Route: 048
     Dates: start: 20120209, end: 20120216
  2. TELAVIC [Suspect]
     Dosage: 1500 MG, ONCE
     Route: 048
     Dates: start: 20120217, end: 20120222
  3. LOSARTAN POTASSIUM [Concomitant]
     Indication: HYPERTENSION
     Route: 048
     Dates: end: 20120222
  4. NOVORAPID [Concomitant]
     Indication: DIABETES MELLITUS
     Dosage: 10 UNITS/MORNING,4 UNITS/NOON,6 UNITS/EVENING
     Route: 058
     Dates: end: 20120222
  5. AMARYL [Concomitant]
     Indication: DIABETES MELLITUS
     Route: 048
     Dates: end: 20120222
  6. PEG-INTRON [Suspect]
     Indication: HEPATITIS C
     Dosage: 1.5MCG/KG/WEEK
     Route: 058
     Dates: start: 20120209, end: 20120222
  7. ALDACTONE [Concomitant]
     Indication: PROPHYLAXIS
     Route: 048
     Dates: end: 20120222
  8. NORVASC [Concomitant]
     Indication: HYPERTENSION
     Route: 048
     Dates: end: 20120222
  9. LASIX [Concomitant]
     Indication: PROPHYLAXIS
     Route: 048
     Dates: end: 20120222
  10. REBETOL [Suspect]
     Indication: HEPATITIS C
     Route: 048
     Dates: start: 20120209, end: 20120222

REACTIONS (3)
  - CARDIAC ARREST [None]
  - HYPERKALAEMIA [None]
  - RENAL DISORDER [None]
